FAERS Safety Report 16457213 (Version 2)
Quarter: 2019Q4

REPORT INFORMATION
  Report Type: Spontaneous
  Country: SA (occurrence: CA)
  Receive Date: 20190620
  Receipt Date: 20191022
  Transmission Date: 20200122
  Serious: Yes (Hospitalization, Other)
  Sender: FDA-Public Use
  Company Number: CA-PFIZER INC-2019254595

PATIENT
  Age: 28 Year
  Sex: Male

DRUGS (1)
  1. EPINEPHRINE. [Suspect]
     Active Substance: EPINEPHRINE
     Dosage: 900 MG, SINGLE
     Route: 048

REACTIONS (5)
  - Oesophagitis haemorrhagic [Unknown]
  - Intentional overdose [Unknown]
  - Gastritis haemorrhagic [Unknown]
  - Vomiting [Unknown]
  - Incorrect route of product administration [Unknown]
